FAERS Safety Report 14588072 (Version 2)
Quarter: 2018Q2

REPORT INFORMATION
  Report Type: Spontaneous
  Country: US (occurrence: US)
  Receive Date: 20180301
  Receipt Date: 20180404
  Transmission Date: 20180711
  Serious: Yes (Other)
  Sender: FDA-Public Use
  Company Number: US-PFIZER INC-2018083389

PATIENT
  Age: 65 Year
  Sex: Female

DRUGS (6)
  1. LYRICA [Suspect]
     Active Substance: PREGABALIN
     Dosage: UNK
  2. MYRBETRIQ [Suspect]
     Active Substance: MIRABEGRON
     Indication: HYPERTONIC BLADDER
     Dosage: 50 MG, 1X/DAY
     Route: 048
     Dates: start: 2015
  3. CLONIDINE. [Suspect]
     Active Substance: CLONIDINE
     Dosage: UNK UNK, 2X/DAY, (0.3 UNK)
  4. METOPROLOL TARTRATE. [Suspect]
     Active Substance: METOPROLOL TARTRATE
     Dosage: UNK
  5. ALLEGRA [Suspect]
     Active Substance: FEXOFENADINE HYDROCHLORIDE
     Dosage: UNK
  6. SAVELLA [Suspect]
     Active Substance: MILNACIPRAN HYDROCHLORIDE
     Dosage: UNK

REACTIONS (5)
  - Migraine [Recovered/Resolved]
  - Gait disturbance [Unknown]
  - Oral herpes [Recovered/Resolved]
  - Drug effect incomplete [Not Recovered/Not Resolved]
  - Dry mouth [Unknown]
